FAERS Safety Report 4567042-7 (Version None)
Quarter: 2005Q1

REPORT INFORMATION
  Report Type: 
  Country: None (occurrence: None)
  Receive Date: 20050201
  Receipt Date: 20041123
  Transmission Date: 20050727
  Serious: Yes (Other)
  Sender: FDA-Public Use
  Company Number: US-BRISTOL-MYERS SQUIBB COMPANY-12782835

PATIENT
  Age: 38 Year
  Sex: Female

DRUGS (17)
  1. STADOL [Suspect]
     Indication: MIGRAINE
     Route: 045
  2. OXYCONTIN [Concomitant]
  3. IMITREX [Concomitant]
  4. PROMETHAZINE + CODEINE [Concomitant]
  5. GUAIFENESIN [Concomitant]
  6. PHENAZOPYRIDINE HCL TAB [Concomitant]
  7. BUTALBITAL + CODEINE [Concomitant]
  8. XENICAL [Concomitant]
  9. VICOPROFEN [Concomitant]
  10. ULTRAM [Concomitant]
  11. HYDROCODONE [Concomitant]
  12. FIORICET [Concomitant]
  13. PERCOCET-DEMI [Concomitant]
  14. TIGAN [Concomitant]
  15. NARDIL [Concomitant]
  16. MIGRANAL [Concomitant]
  17. LORTAB [Concomitant]

REACTIONS (5)
  - DEPENDENCE [None]
  - FALL [None]
  - HUMERUS FRACTURE [None]
  - HYPOTENSION [None]
  - SYNCOPE [None]
